FAERS Safety Report 5228418-8 (Version None)
Quarter: 2007Q1

REPORT INFORMATION
  Report Type: 
  Country: None (occurrence: None)
  Receive Date: 20070131
  Receipt Date: 20070131
  Transmission Date: 20070707
  Serious: Yes (Life-Threatening)
  Sender: FDA-Public Use
  Company Number: None

PATIENT
  Age: 47 Year
  Sex: Female

DRUGS (14)
  1. DILAUDID [Suspect]
     Indication: PAIN MANAGEMENT
     Dosage: 2-4 MG Q 4 HOURS PRN PAIN IV
     Route: 042
     Dates: start: 20060803, end: 20060806
  2. BUSPAR [Concomitant]
  3. TRAZODONE HCL [Concomitant]
  4. SINGULAIR [Concomitant]
  5. INDERAL [Concomitant]
  6. ALBUTEROL [Concomitant]
  7. LOPID [Concomitant]
  8. VYTORIN [Concomitant]
  9. PROTONIX [Concomitant]
  10. ZOFRAN [Concomitant]
  11. IMITREX [Concomitant]
  12. PHENERGAN [Concomitant]
  13. SENOKOT [Concomitant]
  14. BENADRYL [Concomitant]

REACTIONS (3)
  - CYANOSIS [None]
  - DEPRESSED LEVEL OF CONSCIOUSNESS [None]
  - OXYGEN SATURATION DECREASED [None]
